FAERS Safety Report 8077699-4 (Version None)
Quarter: 2012Q1

REPORT INFORMATION
  Report Type: 
  Country: None (occurrence: None)
  Receive Date: 20120127
  Receipt Date: 20120120
  Transmission Date: 20120608
  Serious: Yes (Other)
  Sender: FDA-Public Use
  Company Number: VE-PFIZER INC-2011229837

PATIENT
  Age: 79 Year
  Sex: Male

DRUGS (4)
  1. ZOLOFT [Suspect]
     Dosage: 50 MG, 1X/DAY
     Route: 048
     Dates: start: 20070101
  2. ACETYLSALICYLIC ACID [Concomitant]
     Dosage: UNK
     Route: 048
     Dates: start: 20070101
  3. PLAVIX [Concomitant]
     Dosage: UNK
     Route: 048
     Dates: start: 20070101
  4. ATORVASTATIN [Concomitant]
     Dosage: UNK
     Route: 048
     Dates: start: 20070101

REACTIONS (2)
  - BACK PAIN [None]
  - ANGINA PECTORIS [None]
